FAERS Safety Report 11393813 (Version 2)
Quarter: 2015Q3

REPORT INFORMATION
  Report Type: Spontaneous
  Country: GB (occurrence: GB)
  Receive Date: 20150819
  Receipt Date: 20150828
  Transmission Date: 20151125
  Serious: Yes (Hospitalization, Other)
  Sender: FDA-Public Use
  Company Number: GB-ROCHE-1622514

PATIENT
  Age: 45 Year
  Sex: Male

DRUGS (2)
  1. MABTHERA [Suspect]
     Active Substance: RITUXIMAB
     Indication: HAIRY CELL LEUKAEMIA
     Route: 065
  2. NIPENT [Concomitant]
     Active Substance: PENTOSTATIN

REACTIONS (3)
  - Infection [Unknown]
  - Drug ineffective [Unknown]
  - Hairy cell leukaemia [Unknown]
